FAERS Safety Report 7945389-1 (Version None)
Quarter: 2011Q4

REPORT INFORMATION
  Report Type: 
  Country: None (occurrence: None)
  Receive Date: 20111129
  Receipt Date: 20110728
  Transmission Date: 20120403
  Serious: No
  Sender: FDA-Public Use
  Company Number: US-GLAXOSMITHKLINE-A0938809A

PATIENT
  Age: 57 Year
  Sex: Female

DRUGS (9)
  1. OMEPRAZOLE [Concomitant]
  2. TRAZODONE HCL [Concomitant]
  3. CITALOPRAM [Concomitant]
  4. LEVOTHYROXINE SODIUM [Concomitant]
  5. VITAMIN B6 [Concomitant]
  6. WELLBUTRIN SR [Suspect]
     Indication: DEPRESSION
     Dosage: 200MG TWICE PER DAY
     Route: 048
     Dates: start: 20110301
  7. VITAMIN D [Concomitant]
  8. VITAMIN E [Concomitant]
  9. VITAMIN B-12 [Concomitant]

REACTIONS (5)
  - INSOMNIA [None]
  - HYPERVIGILANCE [None]
  - SPEECH DISORDER [None]
  - FATIGUE [None]
  - DEPRESSION [None]
